FAERS Safety Report 9122770 (Version 2)
Quarter: 2013Q2

REPORT INFORMATION
  Report Type: Spontaneous
  Country: CA (occurrence: CA)
  Receive Date: 20130227
  Receipt Date: 20130424
  Transmission Date: 20140414
  Serious: Yes (Other)
  Sender: FDA-Public Use
  Company Number: CA-BAYER-2013-024903

PATIENT
  Age: 70 Year
  Sex: Female
  Weight: 72.56 kg

DRUGS (11)
  1. ALEVE [Suspect]
     Indication: ARTHRITIS
     Dosage: 220 MG, QAM
     Route: 048
     Dates: start: 20120624, end: 20120630
  2. CALCIUM +VIT D [Concomitant]
     Dosage: UNK UNK, QD
     Route: 048
  3. CHITOSAN [CHITOSAN] [Concomitant]
     Dosage: 2 DF, PRN WITH GREASY MEAL
     Route: 048
  4. EVENING PRIMROSE OIL [Concomitant]
     Dosage: 1000 MG, BID
     Route: 048
  5. CHONDROITIN W/GLUCOSAMINE/ METHYLSULFONYLEMETH. [Concomitant]
     Dosage: 3 DF, TID
     Route: 048
  6. MULTIVITAMINS [Concomitant]
     Dosage: 1 DF, QD
     Route: 048
  7. OMEGA 3 [Concomitant]
     Dosage: 1000 MG, BID
     Route: 048
  8. OXYBUTYNIN [Concomitant]
     Dosage: 5 MG, BID
     Route: 048
  9. SYNTHROID [Concomitant]
     Dosage: 50 ?G, UNK
     Route: 048
  10. VITAMIN B COMPLEX [Concomitant]
     Dosage: 100 MG, TID
     Route: 048
  11. LECITHIN [Concomitant]
     Dosage: 1200 MG, BID
     Route: 048

REACTIONS (1)
  - Haemorrhage [None]
